FAERS Safety Report 9459328 (Version 1)
Quarter: 2013Q3

REPORT INFORMATION
  Report Type: Spontaneous
  Country: RO (occurrence: RO)
  Receive Date: 20130815
  Receipt Date: 20130815
  Transmission Date: 20140515
  Serious: Yes (Hospitalization)
  Sender: FDA-Public Use
  Company Number: RO-ROCHE-1258619

PATIENT
  Age: 57 Year
  Sex: Female

DRUGS (3)
  1. PEGASYS [Suspect]
     Indication: HEPATITIS C
     Route: 058
     Dates: start: 20121123
  2. COPEGUS [Suspect]
     Indication: HEPATITIS C
     Route: 048
     Dates: start: 20121123
  3. DIAPREL [Concomitant]
     Indication: DIABETES MELLITUS
     Dosage: 2 TABLETS/DAY
     Route: 048
     Dates: start: 201207

REACTIONS (2)
  - Enterocolitis bacterial [Recovering/Resolving]
  - Electrolyte imbalance [Recovering/Resolving]
